FAERS Safety Report 6191660-6 (Version None)
Quarter: 2009Q2

REPORT INFORMATION
  Report Type: 
  Country: None (occurrence: None)
  Receive Date: 20090515
  Receipt Date: 20090505
  Transmission Date: 20091009
  Serious: Yes (Death, Life-Threatening, Other)
  Sender: FDA-Public Use
  Company Number: FR-WYE-H09312809

PATIENT
  Sex: Female

DRUGS (15)
  1. CORDARONE [Suspect]
     Dosage: 25 TABLETS (UNSPECIFIED DOSE) ONCE
     Route: 048
     Dates: start: 20080301, end: 20080301
  2. CORDARONE [Suspect]
     Route: 048
  3. CARDIOXANE [Concomitant]
     Dosage: UNKNOWN
     Route: 042
  4. HEMIGOXINE NATIVELLE [Concomitant]
     Dosage: UNKNOWN
     Route: 048
  5. ZOLPIDEM [Suspect]
     Dosage: 25 TABLETS (UNSPECIFIED DOSE) ONCE
     Route: 048
     Dates: start: 20080301, end: 20080301
  6. NEXIUM [Concomitant]
     Dosage: UNKNOWN
     Route: 048
  7. LASIX [Concomitant]
  8. PRAZEPAM [Concomitant]
     Dosage: UNKNOWN
     Route: 048
  9. GAVISCON [Concomitant]
     Dosage: UNKNOWN
     Route: 048
  10. MABTHERA [Suspect]
     Indication: DIFFUSE LARGE B-CELL LYMPHOMA
     Dosage: 510 MG ONCE
     Route: 042
     Dates: start: 20080429, end: 20080429
  11. MABTHERA [Suspect]
     Dosage: 510 MG ONCE
     Route: 042
     Dates: start: 20080521, end: 20080521
  12. MABTHERA [Suspect]
     Dosage: 510 MG ONCE
     Route: 042
     Dates: start: 20080612, end: 20080612
  13. MABTHERA [Suspect]
     Dosage: 510 MG ONCE
     Route: 042
     Dates: start: 20080701, end: 20080701
  14. MABTHERA [Suspect]
     Dosage: 510 MG ONCE
     Route: 042
     Dates: start: 20080805, end: 20080805
  15. PREVISCAN [Concomitant]
     Dosage: UNKNOWN
     Route: 048

REACTIONS (4)
  - INTENTIONAL OVERDOSE [None]
  - LUNG DISORDER [None]
  - RESPIRATORY DISTRESS [None]
  - SUICIDE ATTEMPT [None]
